FAERS Safety Report 8649836 (Version 2)
Quarter: 2012Q4

REPORT INFORMATION
  Report Type: 
  Country: US (occurrence: US)
  Receive Date: 20120705
  Receipt Date: 20121115
  Transmission Date: 20130627
  Serious: Yes (Hospitalization, Other)
  Sender: FDA-Public Use
  Company Number: US-BAYER-2012-064671

PATIENT
  Age: 29 Year
  Sex: Female

DRUGS (3)
  1. YASMIN [Suspect]
     Dosage: UNK
     Dates: start: 200708, end: 201010
  2. ADVAIR [Concomitant]
     Dosage: 100/50
  3. OMEPRAZOLE [Concomitant]
     Dosage: 20 mg, UNK

REACTIONS (8)
  - Deep vein thrombosis [None]
  - Pulmonary embolism [None]
  - Pain [None]
  - Anxiety [None]
  - Injury [None]
  - Pain [None]
  - Gallbladder disorder [None]
  - Cholecystitis chronic [None]
